FAERS Safety Report 6330985-8 (Version None)
Quarter: 2009Q3

REPORT INFORMATION
  Report Type: 
  Country: None (occurrence: None)
  Receive Date: 20090827
  Receipt Date: 20090820
  Transmission Date: 20100115
  Serious: Yes (Other)
  Sender: FDA-Public Use
  Company Number: US-ELI_LILLY_AND_COMPANY-US200908004488

PATIENT
  Sex: Female

DRUGS (5)
  1. HUMALOG [Suspect]
  2. ALPRAZOLAM [Concomitant]
  3. SIMVASTATIN [Concomitant]
  4. LEVOTHYROXINE [Concomitant]
  5. LANTUS [Concomitant]

REACTIONS (7)
  - BLOOD GLUCOSE DECREASED [None]
  - COLD SWEAT [None]
  - FEELING COLD [None]
  - HYPOGLYCAEMIC UNCONSCIOUSNESS [None]
  - INCORRECT DOSE ADMINISTERED [None]
  - PARKINSON'S DISEASE [None]
  - VISION BLURRED [None]
